FAERS Safety Report 11724571 (Version 1)
Quarter: 2015Q4

REPORT INFORMATION
  Report Type: Spontaneous
  Country: US (occurrence: US)
  Receive Date: 20151111
  Receipt Date: 20151111
  Transmission Date: 20160304
  Serious: No
  Sender: FDA-Public Use
  Company Number: US-UCBSA-2014011369

PATIENT
  Sex: Male

DRUGS (8)
  1. VIMPAT [Suspect]
     Active Substance: LACOSAMIDE
     Indication: EPILEPSY
     Dosage: DOSE: 100 MG 2 DAILY: TOTAL DAILY DOSE: 200 MG
     Dates: start: 20140225, end: 2014
  2. VIMPAT [Suspect]
     Active Substance: LACOSAMIDE
     Dosage: DOSE: 150 MG 2 DAILY: TOTAL DAILY DOSE: 300 MG
     Dates: start: 20140605, end: 2014
  3. VIMPAT [Suspect]
     Active Substance: LACOSAMIDE
     Dosage: DOSE: 200 MG 2 DAILY: TOTAL DAILY DOSE: 400 MG
     Route: 048
     Dates: start: 2014
  4. VITAMIN B12 [Concomitant]
     Active Substance: CYANOCOBALAMIN
     Dosage: UNKNOWN DOSE
  5. VITAMIN D [Concomitant]
     Active Substance: CHOLECALCIFEROL
     Dosage: UNKNOWN DOSE
  6. TEGRETOL [Concomitant]
     Active Substance: CARBAMAZEPINE
     Dosage: STRENGTH: 200 MG
  7. CLONAZEPAM. [Concomitant]
     Active Substance: CLONAZEPAM
     Dosage: UNKNOWN DOSE
  8. ZONISAMIDE. [Concomitant]
     Active Substance: ZONISAMIDE
     Dosage: UNKNOWN DOSE
     Dates: start: 2009

REACTIONS (3)
  - Seizure [Recovered/Resolved]
  - Laceration [Unknown]
  - Head injury [Unknown]

NARRATIVE: CASE EVENT DATE: 2014
